FAERS Safety Report 9950397 (Version 1)
Quarter: 2014Q1

REPORT INFORMATION
  Report Type: Spontaneous
  Country: US (occurrence: US)
  Receive Date: 20140304
  Receipt Date: 20140304
  Transmission Date: 20141002
  Serious: No
  Sender: FDA-Public Use
  Company Number: US-ABBVIE-13P-163-1065777-00

PATIENT
  Age: 64 Year
  Sex: Female
  Weight: 87.62 kg

DRUGS (1)
  1. HUMIRA PEN [Suspect]
     Indication: RHEUMATOID ARTHRITIS

REACTIONS (6)
  - Injection site bruising [Recovered/Resolved]
  - Injection site bruising [Recovered/Resolved]
  - Psoriasis [Not Recovered/Not Resolved]
  - Injection site pain [Not Recovered/Not Resolved]
  - Device malfunction [Recovered/Resolved]
  - Incorrect dose administered [Recovered/Resolved]
